FAERS Safety Report 6508358-4 (Version None)
Quarter: 2009Q4

REPORT INFORMATION
  Report Type: 
  Country: None (occurrence: None)
  Receive Date: 20091221
  Receipt Date: 20081105
  Transmission Date: 20100525
  Serious: No
  Sender: FDA-Public Use
  Company Number: US-ASTRAZENECA-2008UW24778

PATIENT
  Age: 81 Year
  Sex: Female
  Weight: 70.8 kg

DRUGS (8)
  1. CRESTOR [Suspect]
     Indication: BLOOD CHOLESTEROL INCREASED
     Dosage: 10 MG
     Route: 048
     Dates: start: 20080601, end: 20081001
  2. ACTONEL [Concomitant]
  3. ASPIRIN [Concomitant]
  4. SYNTHROID [Concomitant]
  5. METOPROLOL TARTRATE [Concomitant]
     Dosage: 50 MG
  6. POTASSIUM [Concomitant]
  7. GLUCOSAMINE CHONDROITIN [Concomitant]
  8. CQ10 [Concomitant]

REACTIONS (2)
  - MYALGIA [None]
  - TENDON DISORDER [None]
